FAERS Safety Report 5637650-0 (Version None)
Quarter: 2008Q1

REPORT INFORMATION
  Report Type: 
  Country: None (occurrence: None)
  Receive Date: 20080225
  Receipt Date: 20080218
  Transmission Date: 20080703
  Serious: Yes (Other)
  Sender: FDA-Public Use
  Company Number: FR-ABBOTT-08P-056-0434880-00

PATIENT
  Sex: Female
  Weight: 85 kg

DRUGS (4)
  1. HUMIRA [Suspect]
     Indication: CROHN'S DISEASE
     Route: 058
     Dates: start: 20070501, end: 20071221
  2. ACETAMINOPHEN [Concomitant]
     Indication: INFLUENZA LIKE ILLNESS
     Route: 048
     Dates: start: 20080110, end: 20080117
  3. TIXOCORTOL PIVALATE [Concomitant]
     Indication: INFLUENZA LIKE ILLNESS
     Route: 048
     Dates: start: 20080110, end: 20080117
  4. HELICIDINE [Concomitant]
     Indication: INFLUENZA LIKE ILLNESS
     Dosage: 4 SPOONFUL
     Route: 048
     Dates: start: 20080110, end: 20080117

REACTIONS (1)
  - ABORTION SPONTANEOUS [None]
